FAERS Safety Report 8544227-6 (Version None)
Quarter: 2012Q3

REPORT INFORMATION
  Report Type: 
  Country: None (occurrence: None)
  Receive Date: 20120727
  Receipt Date: 20120718
  Transmission Date: 20120928
  Serious: Yes (Life-Threatening)
  Sender: FDA-Public Use
  Company Number: BE-009507513-2012SP036330

PATIENT

DRUGS (3)
  1. CRIXOFOL [Concomitant]
     Dosage: UNK UNK, UNKNOWN
     Route: 065
  2. ROCURONIUM BROMIDE [Suspect]
     Indication: NEUROMUSCULAR BLOCKING THERAPY
     Dosage: UNK UNK, UNKNOWN
  3. SUFENTANIL CITRATE [Concomitant]
     Dosage: UNK UNK, UNKNOWN
     Route: 065

REACTIONS (4)
  - TYPE I HYPERSENSITIVITY [None]
  - ANGIOEDEMA [None]
  - OXYGEN SATURATION DECREASED [None]
  - DYSPNOEA [None]
